FAERS Safety Report 21713421 (Version 1)
Quarter: 2022Q4

REPORT INFORMATION
  Report Type: Spontaneous
  Country: US (occurrence: US)
  Receive Date: 20221212
  Receipt Date: 20221212
  Transmission Date: 20230113
  Serious: Yes (Life-Threatening, Other)
  Sender: FDA-Public Use
  Company Number: US-ORG100016242-2022000525

PATIENT
  Age: 67 Year
  Sex: Male
  Weight: 106 kg

DRUGS (3)
  1. EXPAREL [Suspect]
     Active Substance: BUPIVACAINE
     Indication: Nerve block
     Route: 065
     Dates: start: 20220331, end: 20220331
  2. BUPIVACAINE [Suspect]
     Active Substance: BUPIVACAINE
     Indication: Nerve block
     Route: 058
     Dates: start: 20220331, end: 20220331
  3. PROPOFOL [Concomitant]
     Active Substance: PROPOFOL
     Indication: Sedation
     Dosage: NOT PROVIDED
     Route: 042
     Dates: start: 20220331, end: 20220331

REACTIONS (4)
  - Cardiac arrest [Recovered/Resolved]
  - Bradycardia [Unknown]
  - Injection site haematoma [Unknown]
  - Off label use [Unknown]

NARRATIVE: CASE EVENT DATE: 20220331
